FAERS Safety Report 7555940-1 (Version None)
Quarter: 2011Q2

REPORT INFORMATION
  Report Type: 
  Country: None (occurrence: None)
  Receive Date: 20110618
  Receipt Date: 20110606
  Transmission Date: 20111010
  Serious: Yes (Hospitalization, Other)
  Sender: FDA-Public Use
  Company Number: US-ELI_LILLY_AND_COMPANY-US201006002512

PATIENT
  Sex: Female

DRUGS (23)
  1. GLUCOSAMINE CHONDROITIN [Concomitant]
  2. VITAMIN B COMPLEX CAP [Concomitant]
     Dosage: UNK, DAILY (1/D)
  3. CELNIUM [Concomitant]
     Dosage: 30 MG, DAILY (1/D)
  4. ECHINACEA /01323501/ [Concomitant]
  5. VITAMIN D [Concomitant]
  6. CALCIUM CARBONATE [Concomitant]
  7. ASCORBIC ACID [Concomitant]
     Dosage: 1000 MG, 3/D
  8. CLARITIN [Concomitant]
     Dosage: UNK, AS NEEDED
  9. FORTEO [Suspect]
     Dosage: 20 UG, QD
  10. MAGNESIUM [Concomitant]
  11. ADVAIR DISKUS 100/50 [Concomitant]
     Dosage: UNK, 2/D
     Route: 055
  12. ZETIA [Concomitant]
     Dosage: 10 MG, UNK
  13. FORTEO [Suspect]
     Indication: OSTEOPOROSIS
     Dosage: 20 UG, DAILY (1/D)
     Route: 058
     Dates: start: 20100101, end: 20100501
  14. CLARINEX [Concomitant]
  15. COENZYME [Concomitant]
     Dosage: 50 MG, DAILY (1/D)
  16. VENTOLIN HFA [Concomitant]
     Dosage: UNK, AS NEEDED
  17. FORTEO [Suspect]
     Dosage: 20 UG, DAILY (1/D)
     Route: 058
  18. FORTEO [Suspect]
     Dosage: 20 UG, QD
  19. NEXIUM [Concomitant]
     Dosage: 40 MG, UNK
  20. MSM [Concomitant]
     Dosage: UNK, 3/D
  21. POTASSIUM [Concomitant]
     Dosage: 99 MG, DAILY (1/D)
  22. VITAMIN TAB [Concomitant]
     Dosage: UNK, DAILY (1/D)
  23. ACIDOPHILUS [Concomitant]
     Dosage: 10 MG, DAILY (1/D)

REACTIONS (11)
  - VOMITING [None]
  - DIARRHOEA [None]
  - UPPER LIMB FRACTURE [None]
  - VIRAL INFECTION [None]
  - FALL [None]
  - BONE PAIN [None]
  - HIP FRACTURE [None]
  - CHEST PAIN [None]
  - DEHYDRATION [None]
  - NASOPHARYNGITIS [None]
  - INJECTION SITE HAEMORRHAGE [None]
